FAERS Safety Report 25987241 (Version 1)
Quarter: 2025Q4

REPORT INFORMATION
  Report Type: Spontaneous
  Country: GB (occurrence: GB)
  Receive Date: 20251103
  Receipt Date: 20251103
  Transmission Date: 20260118
  Serious: Yes (Other)
  Sender: ALKEM
  Company Number: None

PATIENT
  Age: 56 Year
  Sex: Female

DRUGS (5)
  1. IBUPROFEN [Suspect]
     Active Substance: IBUPROFEN
     Indication: Product used for unknown indication
     Dosage: UNK
     Route: 065
  2. IBUPROFEN [Suspect]
     Active Substance: IBUPROFEN
     Dosage: UNK
     Route: 065
  3. ASPIRIN [Suspect]
     Active Substance: ASPIRIN
     Indication: Product used for unknown indication
     Dosage: UNK
     Route: 065
  4. AVONEX [Suspect]
     Active Substance: INTERFERON BETA-1A
     Indication: Multiple sclerosis
     Dosage: 30 MICROGRAM, ONCE WEEKLY
     Route: 030
     Dates: start: 2015
  5. AVONEX [Suspect]
     Active Substance: INTERFERON BETA-1A
     Dosage: UNK (PRE-FILLED SYRINGE KIT)
     Route: 065

REACTIONS (3)
  - Anaphylactic reaction [Unknown]
  - Influenza like illness [Unknown]
  - Drug hypersensitivity [Unknown]
